FAERS Safety Report 6939674-X (Version None)
Quarter: 2010Q3

REPORT INFORMATION
  Report Type: 
  Country: None (occurrence: None)
  Receive Date: 20100825
  Receipt Date: 20100817
  Transmission Date: 20110219
  Serious: Yes (Hospitalization)
  Sender: FDA-Public Use
  Company Number: US-BIOGENIDEC-2010BI024866

PATIENT
  Age: 76 Year
  Sex: Female

DRUGS (3)
  1. AVONEX [Suspect]
     Indication: MULTIPLE SCLEROSIS
     Route: 030
     Dates: start: 20010406
  2. INDERAL LA [Concomitant]
  3. NEURONTIN [Concomitant]

REACTIONS (3)
  - HYPOTENSION [None]
  - HYPOTONIA [None]
  - URINARY TRACT INFECTION [None]
